FAERS Safety Report 20790660 (Version 1)
Quarter: 2022Q2

REPORT INFORMATION
  Report Type: Spontaneous
  Country: US (occurrence: US)
  Receive Date: 20220505
  Receipt Date: 20220505
  Transmission Date: 20220721
  Serious: No
  Sender: FDA-Public Use
  Company Number: US-PFIZER INC-2019138947

PATIENT
  Age: 64 Year
  Sex: Female

DRUGS (4)
  1. DILANTIN [Suspect]
     Active Substance: PHENYTOIN
     Indication: Idiopathic generalised epilepsy
     Dosage: 3 100 MG CAPSULES WITH 1 30 MG CAPSULE EVERY EVENING
     Route: 048
     Dates: start: 20190325
  2. DILANTIN [Suspect]
     Active Substance: PHENYTOIN
     Indication: Seizure
  3. PHENYTOIN [Suspect]
     Active Substance: PHENYTOIN
     Indication: Idiopathic generalised epilepsy
     Dosage: UNK
  4. PHENYTOIN [Suspect]
     Active Substance: PHENYTOIN
     Indication: Seizure

REACTIONS (1)
  - Drug level fluctuating [Unknown]
